FAERS Safety Report 10598146 (Version 1)
Quarter: 2014Q4

REPORT INFORMATION
  Report Type: Spontaneous
  Country: US (occurrence: US)
  Receive Date: 20141121
  Receipt Date: 20141121
  Transmission Date: 20150529
  Serious: Yes (Other)
  Sender: FDA-Public Use
  Company Number: US-SA-2014SA158108

PATIENT
  Age: 82 Year
  Sex: Female

DRUGS (1)
  1. MULTAQ [Suspect]
     Active Substance: DRONEDARONE
     Indication: ATRIAL FIBRILLATION
     Route: 065
     Dates: start: 2013

REACTIONS (2)
  - Amnesia [Not Recovered/Not Resolved]
  - Transient ischaemic attack [Recovered/Resolved]

NARRATIVE: CASE EVENT DATE: 201407
